FAERS Safety Report 16649071 (Version 13)
Quarter: 2020Q3

REPORT INFORMATION
  Report Type: Spontaneous
  Country: US (occurrence: US)
  Receive Date: 20190730
  Receipt Date: 20200818
  Transmission Date: 20201102
  Serious: Yes (Hospitalization)
  Sender: FDA-Public Use
  Company Number: US-ACTELION-A-NJ2019-193324

PATIENT
  Age: 75 Year
  Sex: Female
  Weight: 75.28 kg

DRUGS (6)
  1. REMODULIN [Suspect]
     Active Substance: TREPROSTINIL
     Indication: PRODUCT USED FOR UNKNOWN INDICATION
     Dosage: 7 NG/KG, PER MIN
     Route: 058
  2. TYVASO [Suspect]
     Active Substance: TREPROSTINIL
     Dosage: 4 BREATHS 4 TIMES A DAY
     Route: 055
  3. AMLODIPINE [Concomitant]
     Active Substance: AMLODIPINE BESYLATE
  4. OPSUMIT [Suspect]
     Active Substance: MACITENTAN
     Indication: PULMONARY ARTERIAL HYPERTENSION
     Dosage: 10 MG, QD
     Route: 048
     Dates: start: 20161017
  5. SILDENAFIL CITRATE. [Concomitant]
     Active Substance: SILDENAFIL CITRATE
  6. TYVASO [Suspect]
     Active Substance: TREPROSTINIL
     Indication: PRODUCT USED FOR UNKNOWN INDICATION
     Dosage: UNK
     Route: 055

REACTIONS (20)
  - Diarrhoea [Unknown]
  - Stent placement [Unknown]
  - Myocardial infarction [Recovered/Resolved]
  - Cough [Unknown]
  - Hospitalisation [Unknown]
  - Pain in jaw [Unknown]
  - Fatigue [Unknown]
  - Abdominal pain upper [Unknown]
  - Pain in extremity [Unknown]
  - Arterial occlusive disease [Unknown]
  - Productive cough [Unknown]
  - Dyspnoea [Unknown]
  - Infusion site pain [Unknown]
  - Infusion site warmth [Unknown]
  - Feeling abnormal [Unknown]
  - Oedema [Unknown]
  - Peripheral swelling [Unknown]
  - Pain [Unknown]
  - Headache [Unknown]
  - Infusion site erythema [Unknown]

NARRATIVE: CASE EVENT DATE: 201906
